FAERS Safety Report 7891010-0 (Version None)
Quarter: 2011Q4

REPORT INFORMATION
  Report Type: 
  Country: None (occurrence: None)
  Receive Date: 20111103
  Receipt Date: 20110727
  Transmission Date: 20120403
  Serious: No
  Sender: FDA-Public Use
  Company Number: US-AMGEN-USASP2011038134

PATIENT
  Age: 57 Year
  Sex: Female

DRUGS (7)
  1. SYNTHROID [Concomitant]
     Dosage: 100 MUG, UNK
  2. ENBREL [Suspect]
     Indication: PRODUCT USED FOR UNKNOWN INDICATION
     Dosage: 50 MG, QWK
  3. METHOTREXATE [Concomitant]
     Dosage: 2.5 MG, UNK
  4. PREDNISONE [Concomitant]
     Dosage: 1 MG, UNK
  5. VITAMIN D [Concomitant]
     Dosage: 1000 IU, UNK
  6. MULTIVITAMIN                       /00097801/ [Concomitant]
  7. CALCIUM [Concomitant]
     Dosage: 500 MG, UNK

REACTIONS (4)
  - INJECTION SITE PRURITUS [None]
  - RASH [None]
  - INJECTION SITE WARMTH [None]
  - INJECTION SITE SWELLING [None]
